FAERS Safety Report 13016239 (Version 2)
Quarter: 2017Q1

REPORT INFORMATION
  Report Type: Spontaneous
  Country: US (occurrence: US)
  Receive Date: 20161212
  Receipt Date: 20170216
  Transmission Date: 20170428
  Serious: Yes (Death, Hospitalization)
  Sender: FDA-Public Use
  Company Number: US-JNJFOC-20161123406

PATIENT
  Age: 83 Year
  Sex: Male
  Weight: 93.7 kg

DRUGS (2)
  1. XARELTO [Suspect]
     Active Substance: RIVAROXABAN
     Indication: ATRIAL FIBRILLATION
     Route: 048
     Dates: start: 20130509, end: 20141130
  2. XARELTO [Suspect]
     Active Substance: RIVAROXABAN
     Indication: CEREBROVASCULAR ACCIDENT PROPHYLAXIS
     Route: 048
     Dates: start: 20130509, end: 20141130

REACTIONS (3)
  - Gastrointestinal haemorrhage [Fatal]
  - Aortic dissection [Fatal]
  - Aortic aneurysm [Fatal]

NARRATIVE: CASE EVENT DATE: 201411
